FAERS Safety Report 10591756 (Version 1)
Quarter: 2014Q4

REPORT INFORMATION
  Report Type: Spontaneous
  Country: GB (occurrence: GB)
  Receive Date: 20141118
  Receipt Date: 20141118
  Transmission Date: 20150529
  Serious: Yes (Other)
  Sender: FDA-Public Use
  Company Number: GB-009507513-1411GBR007171

PATIENT
  Age: 56 Year
  Sex: Male

DRUGS (1)
  1. EZETROL [Suspect]
     Active Substance: EZETIMIBE
     Dosage: 10 MG, TID
     Route: 048
     Dates: start: 201404

REACTIONS (3)
  - Overdose [Unknown]
  - Medication error [Unknown]
  - Myalgia [Unknown]

NARRATIVE: CASE EVENT DATE: 2014
